FAERS Safety Report 6075227-6 (Version None)
Quarter: 2009Q1

REPORT INFORMATION
  Report Type: 
  Country: None (occurrence: None)
  Receive Date: 20090212
  Receipt Date: 20090204
  Transmission Date: 20090719
  Serious: Yes (Other)
  Sender: FDA-Public Use
  Company Number: US-CELGENEUS-163-20785-08100848

PATIENT
  Sex: Male

DRUGS (7)
  1. THALOMID [Suspect]
     Indication: MULTIPLE MYELOMA
     Route: 048
     Dates: start: 20080530, end: 20080601
  2. THALOMID [Suspect]
     Route: 048
     Dates: start: 20080616, end: 20080701
  3. THALOMID [Suspect]
     Route: 048
     Dates: start: 20080711, end: 20080701
  4. THALOMID [Suspect]
     Route: 048
     Dates: start: 20081010
  5. COUMADIN [Concomitant]
     Indication: DRUG USE FOR UNKNOWN INDICATION
     Route: 065
  6. NEXIUM [Concomitant]
     Indication: DRUG USE FOR UNKNOWN INDICATION
     Route: 065
  7. HYDROCODONE BITARTRATE [Concomitant]
     Indication: DRUG USE FOR UNKNOWN INDICATION
     Route: 065

REACTIONS (3)
  - DRUG INTOLERANCE [None]
  - LOWER RESPIRATORY TRACT INFECTION FUNGAL [None]
  - SOMNOLENCE [None]
